FAERS Safety Report 7481975-3 (Version None)
Quarter: 2011Q2

REPORT INFORMATION
  Report Type: 
  Country: None (occurrence: None)
  Receive Date: 20110516
  Receipt Date: 20110510
  Transmission Date: 20111010
  Serious: Yes (Death)
  Sender: FDA-Public Use
  Company Number: FR-ASTRAZENECA-2011SE27655

PATIENT
  Sex: Female

DRUGS (12)
  1. VANCOMYCINE HYDROCHLORIDE [Suspect]
     Indication: ANTIBIOTIC THERAPY
     Route: 042
     Dates: start: 20110201, end: 20110406
  2. DIGOXIN [Concomitant]
     Route: 048
  3. LEVOTHYROXINE SODIUM [Concomitant]
     Route: 048
  4. FORADIL [Concomitant]
     Route: 055
  5. NEXIUM [Concomitant]
     Route: 048
  6. DILTIAZEM [Concomitant]
     Route: 048
  7. INSULINE [Concomitant]
     Route: 058
  8. CRESTOR [Concomitant]
     Route: 048
  9. RAMIPRIL [Concomitant]
     Route: 048
  10. MEROPENEM [Suspect]
     Indication: ANTIBIOTIC THERAPY
     Route: 042
     Dates: start: 20110201, end: 20110411
  11. CASPOFUNGINE [Concomitant]
     Route: 050
     Dates: start: 20110228
  12. ASPIRIN [Concomitant]
     Route: 048

REACTIONS (1)
  - DRUG RASH WITH EOSINOPHILIA AND SYSTEMIC SYMPTOMS [None]
